FAERS Safety Report 5087926-3 (Version None)
Quarter: 2006Q3

REPORT INFORMATION
  Report Type: 
  Country: None (occurrence: None)
  Receive Date: 20060821
  Receipt Date: 20060810
  Transmission Date: 20061208
  Serious: Yes (Other)
  Sender: FDA-Public Use
  Company Number: 2006-08-0442

PATIENT
  Age: 56 Year
  Sex: Female

DRUGS (6)
  1. PEG-INTRON (INTERFERON ALFA-2B) REPIDEN [Suspect]
     Indication: HEPATITIS C
     Dosage: SUBCUTANEOUS
     Route: 058
     Dates: start: 20060518
  2. RIBAVIRIN [Suspect]
     Indication: HEPATITIS C
     Dosage: ORAL
     Route: 048
     Dates: start: 20060518
  3. LISINOPRIL [Concomitant]
  4. LORAZEPAM [Concomitant]
  5. NIFEDIAC CC (NIFEDIPINE) EXTENDED RELEASE TABLET [Concomitant]
  6. VICODIN [Concomitant]

REACTIONS (13)
  - ANORECTAL DISORDER [None]
  - ANOREXIA [None]
  - DEHYDRATION [None]
  - DIARRHOEA [None]
  - DYSPNOEA [None]
  - EPISTAXIS [None]
  - FEELING ABNORMAL [None]
  - HAEMOPTYSIS [None]
  - INSOMNIA [None]
  - NAUSEA [None]
  - PARANASAL SINUS HYPERSECRETION [None]
  - POLLAKIURIA [None]
  - VOMITING [None]
